FAERS Safety Report 10537579 (Version 2)
Quarter: 2014Q4

REPORT INFORMATION
  Report Type: Spontaneous
  Country: BR (occurrence: None)
  Receive Date: 20141021
  Receipt Date: 20141106
  Transmission Date: 20150529
  Serious: Yes (Death)
  Sender: FDA-Public Use
  Company Number: FK201404275

PATIENT
  Age: 39 Year
  Sex: Male

DRUGS (5)
  1. CARBOPLATIN. [Suspect]
     Active Substance: CARBOPLATIN
     Indication: UNDIFFERENTIATED NASOPHARYNGEAL CARCINOMA
     Dosage: CYCLICAL
  2. CISPLATIN. [Suspect]
     Active Substance: CISPLATIN
     Indication: UNDIFFERENTIATED NASOPHARYNGEAL CARCINOMA
     Dosage: CYCLICAL
  3. ETOPOSIDE. [Suspect]
     Active Substance: ETOPOSIDE
     Indication: UNDIFFERENTIATED NASOPHARYNGEAL CARCINOMA
     Dosage: CYCLICAL
  4. GEMCITABINE [Suspect]
     Active Substance: GEMCITABINE\GEMCITABINE HYDROCHLORIDE
     Indication: UNDIFFERENTIATED NASOPHARYNGEAL CARCINOMA
     Dosage: CYCLICAL
  5. PACLITAXEL. [Suspect]
     Active Substance: PACLITAXEL
     Indication: UNDIFFERENTIATED NASOPHARYNGEAL CARCINOMA
     Dosage: CYCLICAL

REACTIONS (4)
  - Renal impairment [None]
  - Shock [None]
  - Thrombotic microangiopathy [None]
  - Haemolytic anaemia [None]
